FAERS Safety Report 16093266 (Version 1)
Quarter: 2019Q1

REPORT INFORMATION
  Report Type: Report from Study
  Country: None (occurrence: US)
  Receive Date: 20190320
  Receipt Date: 20190320
  Transmission Date: 20190418
  Serious: Yes (Other)
  Sender: FDA-Public Use
  Company Number: US-ABBVIE-19K-163-2706994-00

PATIENT
  Age: 65 Year
  Sex: Male

DRUGS (3)
  1. HUMIRA [Suspect]
     Active Substance: ADALIMUMAB
     Indication: RHEUMATOID ARTHRITIS
     Route: 058
     Dates: start: 2009
  2. HUMIRA [Suspect]
     Active Substance: ADALIMUMAB
     Route: 058
  3. HUMIRA [Suspect]
     Active Substance: ADALIMUMAB
     Dosage: INCREASED DOSAGE
     Route: 058

REACTIONS (9)
  - Incorrect dose administered [Not Recovered/Not Resolved]
  - Osteoarthritis [Unknown]
  - Road traffic accident [Recovered/Resolved]
  - Arthralgia [Recovering/Resolving]
  - Spinal fusion surgery [Recovered/Resolved]
  - Rheumatoid nodule [Recovering/Resolving]
  - Drug ineffective [Recovered/Resolved]
  - Dental implantation [Recovered/Resolved]
  - Injection site vesicles [Not Recovered/Not Resolved]

NARRATIVE: CASE EVENT DATE: 2017
